FAERS Safety Report 22130706 (Version 1)
Quarter: 2023Q1

REPORT INFORMATION
  Report Type: Spontaneous
  Country: IT (occurrence: IT)
  Receive Date: 20230323
  Receipt Date: 20230323
  Transmission Date: 20230417
  Serious: Yes (Death, Other)
  Sender: FDA-Public Use
  Company Number: IT-GILEAD-2023-0620533

PATIENT
  Age: 48 Year
  Sex: Male

DRUGS (1)
  1. YESCARTA [Suspect]
     Active Substance: AXICABTAGENE CILOLEUCEL
     Indication: B-cell lymphoma
     Dosage: ^1 ADMINISTRATION RECEIVED^
     Route: 065

REACTIONS (6)
  - Death [Fatal]
  - Disease progression [Unknown]
  - Cytopenia [Unknown]
  - Cytokine release syndrome [Unknown]
  - Nervous system disorder [Unknown]
  - Infection [Unknown]

NARRATIVE: CASE EVENT DATE: 20221026
